FAERS Safety Report 7880087-4 (Version None)
Quarter: 2011Q4

REPORT INFORMATION
  Report Type: 
  Country: None (occurrence: None)
  Receive Date: 20111101
  Receipt Date: 20111017
  Transmission Date: 20120403
  Serious: Yes (Other)
  Sender: FDA-Public Use
  Company Number: GB-WATSON-2011-17410

PATIENT
  Age: 11 Year
  Sex: Male

DRUGS (8)
  1. MYCOPHENOLATE MEFETIL [Suspect]
     Indication: RENAL FAILURE CHRONIC
  2. TACROLIMUS [Suspect]
     Indication: RENAL TRANSPLANT
  3. PREDNISOLONE [Suspect]
     Indication: RENAL FAILURE CHRONIC
  4. MYCOPHENOLATE MEFETIL [Suspect]
     Indication: RENAL TRANSPLANT
  5. PREDNISOLONE [Suspect]
     Indication: RENAL TRANSPLANT
  6. AZATHIOPRINE [Suspect]
     Indication: RENAL FAILURE CHRONIC
  7. AZATHIOPRINE [Suspect]
     Indication: RENAL TRANSPLANT
  8. TACROLIMUS [Suspect]
     Indication: RENAL FAILURE CHRONIC

REACTIONS (4)
  - CENTRAL NERVOUS SYSTEM LESION [None]
  - EPSTEIN-BARR VIRUS INFECTION [None]
  - EPSTEIN-BARR VIRUS ASSOCIATED LYMPHOPROLIFERATIVE DISORDER [None]
  - CONVULSION [None]
